FAERS Safety Report 8396507-5 (Version None)
Quarter: 2012Q1

REPORT INFORMATION
  Report Type: 
  Country: None (occurrence: None)
  Receive Date: 20120323
  Receipt Date: 20110330
  Transmission Date: 20120608
  Serious: Yes (Other)
  Sender: FDA-Public Use
  Company Number: 163-21880-11033669

PATIENT
  Age: 52 Year
  Sex: Female

DRUGS (1)
  1. REVLIMID [Suspect]
     Indication: ACUTE PROMYELOCYTIC LEUKAEMIA
     Dosage: 5 MG, DAILY FOR 21 DAYS OUT OF 28, PO
     Route: 048
     Dates: start: 20110308

REACTIONS (2)
  - THROMBOCYTOPENIA [None]
  - ANAEMIA [None]
